FAERS Safety Report 12245911 (Version 1)
Quarter: 2016Q2

REPORT INFORMATION
  Report Type: Spontaneous
  Country: US (occurrence: US)
  Receive Date: 20160407
  Receipt Date: 20160407
  Transmission Date: 20160815
  Serious: No
  Sender: FDA-Public Use
  Company Number: US-WATSON-2015-15132

PATIENT
  Sex: Male

DRUGS (1)
  1. NORTRIPTYLINE HYDROCHLORIDE (WATSON LABORATORIES) [Suspect]
     Active Substance: NORTRIPTYLINE HYDROCHLORIDE
     Indication: NEURALGIA
     Dosage: UNK UNK, UNKNOWN
     Route: 065

REACTIONS (4)
  - Drug effect incomplete [Unknown]
  - Photosensitivity reaction [Unknown]
  - Product use issue [Unknown]
  - Dizziness [Unknown]
